FAERS Safety Report 8724316 (Version 2)
Quarter: 2012Q4

REPORT INFORMATION
  Report Type: 
  Country: US (occurrence: US)
  Receive Date: 20120815
  Receipt Date: 20121003
  Transmission Date: 20130627
  Serious: Yes (Other)
  Sender: FDA-Public Use
  Company Number: US-SANOFI-AVENTIS-2012SA057126

PATIENT
  Age: 45 Year
  Sex: Male

DRUGS (2)
  1. APIDRA SOLOSTAR [Suspect]
     Route: 058
     Dates: start: 2010
  2. SOLOSTAR [Suspect]
     Dates: start: 2010

REACTIONS (3)
  - Muscle twitching [Recovered/Resolved]
  - Blood glucose decreased [Unknown]
  - Pain in extremity [Unknown]
